FAERS Safety Report 9859854 (Version 1)
Quarter: 2014Q1

REPORT INFORMATION
  Report Type: Spontaneous
  Country: FR (occurrence: FR)
  Receive Date: 20140131
  Receipt Date: 20140131
  Transmission Date: 20141002
  Serious: Yes (Death, Hospitalization)
  Sender: FDA-Public Use
  Company Number: FR-ASTRAZENECA-2014SE06792

PATIENT
  Age: 14947 Day
  Sex: Male

DRUGS (8)
  1. ATACAND [Suspect]
     Route: 048
     Dates: end: 20131224
  2. VALIUM (ROCHE) [Suspect]
     Route: 048
     Dates: end: 20131224
  3. VALIUM (ROCHE) [Suspect]
     Route: 048
     Dates: start: 201312, end: 201312
  4. ALPRAZOLAM [Suspect]
     Route: 048
     Dates: start: 201312, end: 201312
  5. SOLIAN [Suspect]
     Route: 048
     Dates: end: 20131224
  6. THERALENE [Suspect]
     Dosage: 1 BOTTLE ONCE
     Route: 048
     Dates: start: 201312, end: 201312
  7. TERCIAN [Suspect]
     Route: 048
     Dates: end: 20131224
  8. TERCIAN [Suspect]
     Route: 048
     Dates: start: 201312, end: 201312

REACTIONS (8)
  - Coma [Fatal]
  - Cardiac arrest [Fatal]
  - Cardio-respiratory distress [Fatal]
  - Hypotension [Fatal]
  - Pneumonia aspiration [Fatal]
  - Renal failure [Fatal]
  - Multi-organ failure [Fatal]
  - Brain death [Fatal]
